FAERS Safety Report 9515437 (Version 1)
Quarter: 2013Q3

REPORT INFORMATION
  Report Type: Report from Study
  Country: IN (occurrence: IN)
  Receive Date: 20130911
  Receipt Date: 20130911
  Transmission Date: 20140515
  Serious: Yes (Death, Other)
  Sender: FDA-Public Use
  Company Number: PHHY2013IN098972

PATIENT
  Age: 54 Year
  Sex: Male

DRUGS (1)
  1. AFINITOR [Suspect]
     Indication: RENAL CELL CARCINOMA
     Dosage: 10 MG, QD
     Route: 048
     Dates: start: 20130803, end: 20130831

REACTIONS (6)
  - Death [Fatal]
  - Nervous system disorder [Unknown]
  - Yellow skin [Unknown]
  - Pallor [Unknown]
  - Aphagia [Unknown]
  - Paronychia [Unknown]
